FAERS Safety Report 16891437 (Version 1)
Quarter: 2019Q4

REPORT INFORMATION
  Report Type: Spontaneous
  Country: US (occurrence: US)
  Receive Date: 20191005
  Receipt Date: 20191005
  Transmission Date: 20200122
  Serious: Yes (Life-Threatening, Hospitalization, Disabling, Other)
  Sender: FDA-Public Use
  Company Number: None

PATIENT
  Age: 26 Year
  Sex: Female
  Weight: 122.47 kg

DRUGS (4)
  1. LEXAPRO [Suspect]
     Active Substance: ESCITALOPRAM OXALATE
  2. DULOXETINE. [Suspect]
     Active Substance: DULOXETINE
  3. GABAPENTIN. [Suspect]
     Active Substance: GABAPENTIN
     Indication: PRODUCT USED FOR UNKNOWN INDICATION
     Dosage: ?          QUANTITY:60 ;?
     Dates: start: 20190906, end: 20190913
  4. CYCLOBENZAPRINE. [Suspect]
     Active Substance: CYCLOBENZAPRINE

REACTIONS (7)
  - Drug interaction [None]
  - Surgical procedure repeated [None]
  - Product prescribing issue [None]
  - Intentional self-injury [None]
  - Skin laceration [None]
  - Treatment noncompliance [None]
  - Joint injury [None]

NARRATIVE: CASE EVENT DATE: 20190913
